FAERS Safety Report 11764156 (Version 1)
Quarter: 2015Q4

REPORT INFORMATION
  Report Type: Spontaneous
  Country: US (occurrence: US)
  Receive Date: 20151120
  Receipt Date: 20151120
  Transmission Date: 20160304
  Serious: No
  Sender: FDA-Public Use
  Company Number: US-ELI_LILLY_AND_COMPANY-US201212007968

PATIENT
  Age: 37 Year
  Sex: Female

DRUGS (2)
  1. FORTEO [Suspect]
     Active Substance: TERIPARATIDE
     Indication: OSTEOPOROSIS
     Dosage: 20 UG, QD
     Dates: start: 20121220
  2. FORTEO [Suspect]
     Active Substance: TERIPARATIDE
     Dosage: 20 UG, QD

REACTIONS (15)
  - Peripheral swelling [Recovering/Resolving]
  - Fall [Recovered/Resolved]
  - Cystitis [Unknown]
  - Urinary tract infection [Unknown]
  - Abdominal discomfort [Unknown]
  - Terminal insomnia [Unknown]
  - Joint swelling [Recovering/Resolving]
  - Renal pain [Unknown]
  - Somnolence [Unknown]
  - Back pain [Unknown]
  - Insomnia [Unknown]
  - Arthralgia [Unknown]
  - Thyroid disorder [Unknown]
  - Constipation [Recovering/Resolving]
  - Injection site bruising [Recovering/Resolving]

NARRATIVE: CASE EVENT DATE: 201212
